FAERS Safety Report 6149266-0 (Version None)
Quarter: 2009Q2

REPORT INFORMATION
  Report Type: 
  Country: None (occurrence: None)
  Receive Date: 20090409
  Receipt Date: 20090330
  Transmission Date: 20091009
  Serious: Yes (Hospitalization)
  Sender: FDA-Public Use
  Company Number: US-ELI_LILLY_AND_COMPANY-US200903007619

PATIENT
  Sex: Female

DRUGS (12)
  1. EVISTA [Suspect]
     Dosage: UNK, UNKNOWN
     Route: 065
  2. AVAPRO [Concomitant]
     Dosage: UNK, UNKNOWN
     Route: 065
  3. METOPROLOL [Concomitant]
     Dosage: UNK, UNKNOWN
     Route: 065
  4. ATIVAN [Concomitant]
     Indication: SEDATIVE THERAPY
     Dosage: UNK, UNKNOWN
     Route: 065
  5. CARISOPRODOL [Concomitant]
     Dosage: UNK, UNKNOWN
     Route: 065
  6. AMIODARONE HCL [Concomitant]
     Dosage: UNK, UNKNOWN
     Route: 065
  7. PLAVIX [Concomitant]
     Indication: STENT PLACEMENT
     Dosage: UNK, UNKNOWN
     Route: 065
  8. CALTRATE 600 + D [Concomitant]
     Dosage: UNK, UNKNOWN
     Route: 065
  9. MULTI-VIT [Concomitant]
     Dosage: UNK, UNKNOWN
     Route: 065
  10. ASPIRIN [Concomitant]
     Dosage: 81 MG, UNKNOWN
     Route: 065
  11. VICODIN [Concomitant]
     Dosage: UNK, UNKNOWN
     Route: 065
  12. FENTANYL [Concomitant]
     Dosage: UNK, UNKNOWN
     Route: 065

REACTIONS (1)
  - PANCREATITIS [None]
